FAERS Safety Report 8306630-9 (Version None)
Quarter: 2012Q2

REPORT INFORMATION
  Report Type: 
  Country: None (occurrence: None)
  Receive Date: 20120420
  Receipt Date: 20120411
  Transmission Date: 20120825
  Serious: Yes (Other)
  Sender: FDA-Public Use
  Company Number: 132563

PATIENT
  Age: 56 Year
  Sex: Female
  Weight: 82.5547 kg

DRUGS (15)
  1. GLIPIZIDE [Concomitant]
  2. HYDROCODOE WITH ASPIRIN [Concomitant]
  3. DIOVAN [Concomitant]
  4. METOPROLOL TARTRATE [Concomitant]
  5. ASPIRIN [Concomitant]
  6. REGLAN [Concomitant]
  7. GLEEVEC [Concomitant]
  8. PREDNISONE [Concomitant]
  9. MULTI-VITAMIN [Concomitant]
  10. HYDROCHLOROTHIAZIDE [Concomitant]
  11. PLAVIX [Concomitant]
  12. SUMATRIPTAN SUCCINATE [Suspect]
     Indication: MIGRAINE
     Dosage: 6MG (0.5ML) SUBCUTANEOUS (SUBQ); ONE DOSE
     Route: 058
     Dates: start: 20120410
  13. ATORVASTATIN CALCIUM [Concomitant]
  14. METFORMIN HCL [Concomitant]
  15. IRON SULFATETHIAMIN COMPOUND TAB [Concomitant]

REACTIONS (2)
  - MEDICATION ERROR [None]
  - EXPIRED DRUG ADMINISTERED [None]
